FAERS Safety Report 7313907-2 (Version None)
Quarter: 2011Q1

REPORT INFORMATION
  Report Type: 
  Country: None (occurrence: None)
  Receive Date: 20110225
  Receipt Date: 20110215
  Transmission Date: 20110831
  Serious: Yes (Hospitalization)
  Sender: FDA-Public Use
  Company Number: JP-ABBOTT-08P-087-0480419-00

PATIENT
  Sex: Male
  Weight: 60 kg

DRUGS (29)
  1. RACOL [Concomitant]
     Indication: CROHN'S DISEASE
     Route: 048
     Dates: start: 20051022, end: 20081004
  2. GASTROM [Concomitant]
     Indication: GASTROINTESTINAL ULCER
     Route: 048
     Dates: start: 20070324
  3. BETAMETHASONE [Concomitant]
     Route: 048
     Dates: start: 20081008
  4. HYDANTOL F [Concomitant]
     Route: 048
     Dates: start: 20081008
  5. PENTASA [Concomitant]
     Indication: CROHN'S DISEASE
     Route: 048
     Dates: start: 20051022, end: 20081004
  6. BETAMETHASONE [Concomitant]
     Dates: start: 20080802, end: 20080821
  7. GENTACIN [Concomitant]
  8. RACOL [Concomitant]
     Route: 048
     Dates: start: 20081008
  9. BETAMETHASONE [Concomitant]
     Indication: CROHN'S DISEASE
     Route: 048
     Dates: start: 20080822, end: 20081004
  10. DERMOSOL G [Concomitant]
     Indication: ALOPECIA AREATA
     Dates: start: 20081008
  11. DERMOSOL G [Concomitant]
     Dates: start: 20080623
  12. TAKEPRON [Concomitant]
     Indication: PROPHYLAXIS AGAINST GASTROINTESTINAL ULCER
     Route: 048
     Dates: start: 20050806
  13. GENTACIN [Concomitant]
     Indication: ECZEMA
     Dates: start: 20080303
  14. ISODINE GARGLE [Concomitant]
     Indication: NASOPHARYNGITIS
     Dates: start: 20081006
  15. HYDANTOL [Concomitant]
     Indication: EPILEPSY
     Route: 048
  16. DERMOSOL G [Concomitant]
     Indication: ECZEMA
     Dates: start: 20080303
  17. HYDANTOL F [Concomitant]
     Indication: EPILEPSY
     Route: 048
     Dates: start: 20030213
  18. LAC B [Concomitant]
     Indication: GASTROINTESTINAL DISORDER
     Route: 048
     Dates: start: 20070324
  19. ALEVIATIN [Concomitant]
     Indication: EPILEPSY
  20. HUMIRA [Suspect]
     Indication: CROHN'S DISEASE
     Route: 058
     Dates: start: 20071011
  21. BENET [Concomitant]
     Indication: OSTEOPOROSIS PROPHYLAXIS
     Route: 048
     Dates: start: 20041023
  22. ISODINE GARGLE [Concomitant]
     Indication: PROPHYLAXIS
     Dates: start: 20080131, end: 20081004
  23. IMURAN [Concomitant]
     Indication: CROHN'S DISEASE
     Route: 048
     Dates: start: 20070105, end: 20081004
  24. PENTASA [Concomitant]
     Route: 048
     Dates: start: 20081008
  25. BETAMETHASONE [Concomitant]
     Dates: start: 20100813
  26. BETAMETHASONE [Concomitant]
     Route: 048
     Dates: start: 20100813
  27. LAXOBERON [Concomitant]
     Route: 048
     Dates: start: 20081006
  28. IMURAN [Concomitant]
     Dates: start: 20080108, end: 20100901
  29. LAXOBERON [Concomitant]
     Indication: CONSTIPATION
     Route: 048
     Dates: start: 20070926, end: 20081004

REACTIONS (7)
  - PYREXIA [None]
  - HEADACHE [None]
  - MALAISE [None]
  - DIZZINESS [None]
  - OROPHARYNGEAL DISCOMFORT [None]
  - INTESTINAL OBSTRUCTION [None]
  - NAUSEA [None]
